FAERS Safety Report 4871145-7 (Version None)
Quarter: 2005Q4

REPORT INFORMATION
  Report Type: 
  Country: None (occurrence: None)
  Receive Date: 20051229
  Receipt Date: 20051207
  Transmission Date: 20060501
  Serious: Yes (Hospitalization)
  Sender: FDA-Public Use
  Company Number: 2005-12-0365

PATIENT
  Age: 70 Year
  Sex: Male

DRUGS (1)
  1. CELESTAMINE TAB [Suspect]
     Indication: CHRONIC SINUSITIS
     Dosage: ORAL
     Route: 048
     Dates: start: 20010101, end: 20041001

REACTIONS (3)
  - AUTOIMMUNE HEPATITIS [None]
  - HEPATOMEGALY [None]
  - TREATMENT NONCOMPLIANCE [None]
